FAERS Safety Report 6807716-8 (Version None)
Quarter: 2010Q2

REPORT INFORMATION
  Report Type: 
  Country: None (occurrence: None)
  Receive Date: 20100629
  Receipt Date: 20090225
  Transmission Date: 20101027
  Serious: No
  Sender: FDA-Public Use
  Company Number: US-PFIZER INC-2008090131

PATIENT
  Sex: Female
  Weight: 96.8 kg

DRUGS (9)
  1. TIKOSYN [Suspect]
     Indication: ATRIAL FIBRILLATION
     Dates: start: 20081001
  2. TIKOSYN [Suspect]
     Indication: ATRIAL FLUTTER
  3. COUMADIN [Concomitant]
  4. LANOXIN [Concomitant]
  5. CHLORTHALIDONE [Concomitant]
  6. SIMVASTATIN [Concomitant]
  7. MELOXICAM [Concomitant]
  8. ASCORBIC ACID/COPPER/RETINOL/TOCOPHEROL/ZINC [Concomitant]
  9. CARDIZEM [Concomitant]

REACTIONS (6)
  - ASTHENIA [None]
  - BLOOD PRESSURE INCREASED [None]
  - DYSPNOEA [None]
  - HEART RATE INCREASED [None]
  - INSOMNIA [None]
  - URINE FLOW DECREASED [None]
